FAERS Safety Report 9524991 (Version 2)
Quarter: 2014Q1

REPORT INFORMATION
  Report Type: Spontaneous
  Country: US (occurrence: None)
  Receive Date: 20130912
  Receipt Date: 20140116
  Transmission Date: 20141002
  Serious: Yes (Other)
  Sender: FDA-Public Use
  Company Number: AUR-APL-2013-07442

PATIENT
  Age: 55 Year
  Sex: Male

DRUGS (2)
  1. CYCLOBENZAPRINE [Suspect]
     Indication: PAIN
     Dosage: 30 MG (10 MG, 3 IN 1 D), UNKNOWN
  2. OXYCODONE [Suspect]
     Indication: PAIN

REACTIONS (4)
  - Psychotic disorder [None]
  - Myoclonus [None]
  - Dyskinesia [None]
  - Toxicity to various agents [None]
